FAERS Safety Report 4739178-9 (Version None)
Quarter: 2005Q3

REPORT INFORMATION
  Report Type: 
  Country: None (occurrence: None)
  Receive Date: 20050810
  Receipt Date: 20050509
  Transmission Date: 20060218
  Serious: No
  Sender: FDA-Public Use
  Company Number: US-GLAXOSMITHKLINE-A0557773A

PATIENT
  Sex: Male

DRUGS (2)
  1. PAXIL CR [Suspect]
     Dosage: 25MG PER DAY
     Route: 048
     Dates: end: 20050506
  2. MAVIK [Concomitant]

REACTIONS (7)
  - CHEST WALL PAIN [None]
  - DIARRHOEA [None]
  - FEELING ABNORMAL [None]
  - HYPERHIDROSIS [None]
  - LUNG DISORDER [None]
  - NAUSEA [None]
  - PRODUCTIVE COUGH [None]
